FAERS Safety Report 4435394-4 (Version None)
Quarter: 2004Q3

REPORT INFORMATION
  Report Type: 
  Country: None (occurrence: None)
  Receive Date: 20040826
  Receipt Date: 20040813
  Transmission Date: 20050211
  Serious: Yes (Other)
  Sender: FDA-Public Use
  Company Number: 2004056062

PATIENT
  Age: 75 Year
  Sex: Female

DRUGS (5)
  1. ZOLOFT [Suspect]
     Indication: ANXIETY
     Dosage: (1 IN 1 D), ORAL
     Route: 048
     Dates: start: 19930201
  2. ALPRAZOLAM [Suspect]
     Indication: ANXIETY
     Dosage: (1 IN 1 D), ORAL
     Route: 048
     Dates: start: 19930201
  3. ALENDRONATE SODIUM [Concomitant]
  4. THYROID TAB [Concomitant]
  5. CELECOXIB (CELECOXIB) [Concomitant]

REACTIONS (10)
  - APATHY [None]
  - ARTHRITIS [None]
  - BODY HEIGHT DECREASED [None]
  - DEPRESSION [None]
  - HYPERTONIC BLADDER [None]
  - HYPOTHYROIDISM [None]
  - MEDICATION ERROR [None]
  - OSTEOARTHRITIS [None]
  - UMBILICAL HERNIA [None]
  - WEIGHT FLUCTUATION [None]
